FAERS Safety Report 14536999 (Version 1)
Quarter: 2018Q1

REPORT INFORMATION
  Report Type: Spontaneous
  Country: US (occurrence: US)
  Receive Date: 20180215
  Receipt Date: 20180215
  Transmission Date: 20180509
  Serious: No
  Sender: FDA-Public Use
  Company Number: US-009507513-1802USA007491

PATIENT
  Age: 16 Year
  Sex: Female
  Weight: 68.03 kg

DRUGS (1)
  1. NEXPLANON [Suspect]
     Active Substance: ETONOGESTREL
     Dosage: LEFT ARM IMPLANT
     Route: 059
     Dates: start: 2017

REACTIONS (4)
  - Product use in unapproved indication [Unknown]
  - Viral infection [Unknown]
  - Polymenorrhoea [Unknown]
  - Menorrhagia [Unknown]

NARRATIVE: CASE EVENT DATE: 2017
